FAERS Safety Report 5528599-2 (Version None)
Quarter: 2007Q4

REPORT INFORMATION
  Report Type: 
  Country: None (occurrence: None)
  Receive Date: 20071121
  Receipt Date: 20071109
  Transmission Date: 20080405
  Serious: Yes (Other)
  Sender: FDA-Public Use
  Company Number: CHNY2007GB03278

PATIENT
  Age: 70 Year
  Sex: Male

DRUGS (2)
  1. LAMISIL [Suspect]
     Indication: TINEA PEDIS
     Dosage: SINGLE APPLICATION, TOPICAL
     Route: 061
  2. LANZOPRAZOL (LANSOPRAZOLE) [Concomitant]

REACTIONS (9)
  - CELLULITIS [None]
  - DISEASE RECURRENCE [None]
  - ERYTHEMA [None]
  - FEELING HOT [None]
  - INFLUENZA LIKE ILLNESS [None]
  - LOCALISED INFECTION [None]
  - OEDEMA PERIPHERAL [None]
  - PAIN IN EXTREMITY [None]
  - TINEA PEDIS [None]
